FAERS Safety Report 9977932 (Version 1)
Quarter: 2014Q1

REPORT INFORMATION
  Report Type: Report from Study
  Country: US (occurrence: US)
  Receive Date: 20140306
  Receipt Date: 20140306
  Transmission Date: 20141002
  Serious: No
  Sender: FDA-Public Use
  Company Number: US-ABBVIE-13P-163-1161696-00

PATIENT
  Age: 66 Year
  Sex: Female

DRUGS (12)
  1. HUMIRA [Suspect]
     Indication: CROHN^S DISEASE
     Dates: start: 20130920
  2. PLAVIX [Concomitant]
     Indication: CORONARY ARTERY RESTENOSIS
     Dosage: 75MG DAILY
  3. ASA [Concomitant]
     Indication: CORONARY ARTERY RESTENOSIS
     Dosage: 81MG DAILY
  4. LISINOPRIL [Concomitant]
     Indication: CORONARY ARTERY RESTENOSIS
     Dosage: 5MG DAILY
  5. METOPROLOL [Concomitant]
     Indication: CORONARY ARTERY RESTENOSIS
  6. ATORVASTATIN [Concomitant]
     Indication: CHOLESTEROSIS
     Dosage: 40MG DAILY
  7. LEVOTHYROXINE [Concomitant]
     Indication: THYROID DISORDER
     Dosage: 100MG DAILY
  8. DEXILANT [Concomitant]
     Indication: GASTRIC DISORDER
     Dosage: 60MG DAILY
  9. BIOTIN [Concomitant]
     Indication: NAIL DISORDER
  10. CALCIUM [Concomitant]
     Indication: PRODUCT USED FOR UNKNOWN INDICATION
  11. VITAMIN D [Concomitant]
     Indication: PRODUCT USED FOR UNKNOWN INDICATION
  12. ZOLPIDEM [Concomitant]
     Indication: INSOMNIA
     Dosage: AT BEDTIME

REACTIONS (3)
  - Constipation [Not Recovered/Not Resolved]
  - Rectal spasm [Not Recovered/Not Resolved]
  - Injection site pain [Not Recovered/Not Resolved]
